FAERS Safety Report 8469650-X (Version None)
Quarter: 2012Q2

REPORT INFORMATION
  Report Type: 
  Country: None (occurrence: None)
  Receive Date: 20120626
  Receipt Date: 20120622
  Transmission Date: 20120825
  Serious: Yes (Other)
  Sender: FDA-Public Use
  Company Number: PHHY2012DK053765

PATIENT
  Sex: Female

DRUGS (1)
  1. GESTODENE AND ETHINYL ESTRADIOL [Suspect]
     Indication: CONTRACEPTION
     Dates: start: 20020101, end: 20100901

REACTIONS (6)
  - PYREXIA [None]
  - ABDOMINAL PAIN UPPER [None]
  - HEPATIC ENZYME INCREASED [None]
  - LIVER DISORDER [None]
  - DIARRHOEA [None]
  - FOCAL NODULAR HYPERPLASIA [None]
